FAERS Safety Report 24416904 (Version 1)
Quarter: 2024Q4

REPORT INFORMATION
  Report Type: Spontaneous
  Country: US (occurrence: US)
  Receive Date: 20241009
  Receipt Date: 20241009
  Transmission Date: 20250115
  Serious: No
  Sender: BRISTOL MYERS SQUIBB
  Company Number: US-BRISTOL-MYERS SQUIBB COMPANY-2024-157113

PATIENT
  Age: 35 Year
  Sex: Female
  Weight: 61.69 kg

DRUGS (1)
  1. ELIQUIS [Suspect]
     Active Substance: APIXABAN
     Indication: Cerebrovascular accident
     Route: 048
     Dates: start: 20240912

REACTIONS (4)
  - Nausea [Unknown]
  - Vomiting [Unknown]
  - Sleep disorder [Unknown]
  - Illness [Unknown]

NARRATIVE: CASE EVENT DATE: 20241004
